FAERS Safety Report 6042914-5 (Version None)
Quarter: 2009Q1

REPORT INFORMATION
  Report Type: 
  Country: None (occurrence: None)
  Receive Date: 20090119
  Receipt Date: 20090116
  Transmission Date: 20090719
  Serious: Yes (Congenital Anomaly)
  Sender: FDA-Public Use
  Company Number: A0763986B

PATIENT
  Sex: Male

DRUGS (9)
  1. LAMOTRIGINE [Suspect]
     Indication: BIPOLAR DISORDER
     Dates: start: 20080922
  2. LITHIUM [Concomitant]
     Dosage: 600MG PER DAY
     Dates: start: 20080806, end: 20081117
  3. VALTREX [Concomitant]
     Dosage: 500MG PER DAY
  4. PERCOCET [Concomitant]
  5. RHINOCORT [Concomitant]
  6. VITAMIN AND MINERAL PRENATAL SUPPLEMENT W/ FOLIC ACID CAP [Concomitant]
  7. IRON [Concomitant]
  8. LABETALOL [Concomitant]
     Dosage: 200MG PER DAY
  9. NEURONTIN [Concomitant]
     Dosage: 2400MG PER DAY

REACTIONS (3)
  - BREECH PRESENTATION [None]
  - CONGENITAL TORTICOLLIS [None]
  - DRUG EXPOSURE DURING PREGNANCY [None]
